FAERS Safety Report 6216638-5 (Version None)
Quarter: 2009Q2

REPORT INFORMATION
  Report Type: 
  Country: None (occurrence: None)
  Receive Date: 20090605
  Receipt Date: 20090525
  Transmission Date: 20091009
  Serious: Yes (Other)
  Sender: FDA-Public Use
  Company Number: GB-NOVOPROD-287607

PATIENT
  Age: 41 Year
  Sex: Female
  Weight: 77.1 kg

DRUGS (2)
  1. LEVEMIR [Suspect]
     Indication: TYPE 1 DIABETES MELLITUS
     Dosage: 26 IU, QD
     Route: 058
     Dates: start: 20080601, end: 20090501
  2. PERINDOPRIL ERBUMINE [Concomitant]
     Indication: MICROALBUMINURIA
     Dosage: 2 MG, QD
     Route: 048
     Dates: start: 20080101

REACTIONS (3)
  - DIABETES MELLITUS INADEQUATE CONTROL [None]
  - DIABETIC COMPLICATION [None]
  - WEIGHT DECREASED [None]
